FAERS Safety Report 12690315 (Version 2)
Quarter: 2016Q4

REPORT INFORMATION
  Report Type: Spontaneous
  Country: JP (occurrence: JP)
  Receive Date: 20160826
  Receipt Date: 20161212
  Transmission Date: 20170207
  Serious: Yes (Other)
  Sender: FDA-Public Use
  Company Number: JP-JNJFOC-20160819944

PATIENT

DRUGS (5)
  1. PEGINTRON [Suspect]
     Active Substance: PEGINTERFERON ALFA-2B
     Indication: CHRONIC HEPATITIS C
     Dosage: 60 UG TO 150 UG BASED ON BODY WEIGHT FOR 24 WEEKS
     Route: 058
  2. RIBAVIRIN. [Suspect]
     Active Substance: RIBAVIRIN
     Indication: CHRONIC HEPATITIS C
     Dosage: REDUCED AS PER THE BODY WEIGHT, AGE AND ITPA GENOTYPE
     Route: 048
  3. PEGASYS [Suspect]
     Active Substance: PEGINTERFERON ALFA-2A
     Indication: CHRONIC HEPATITIS C
     Dosage: FOR 24 WEEKS
     Route: 058
  4. RIBAVIRIN. [Suspect]
     Active Substance: RIBAVIRIN
     Indication: CHRONIC HEPATITIS C
     Dosage: 600 TO 1000 MG DEPENDING ON BODY WEIGHT
     Route: 048
  5. SOVRIAD [Suspect]
     Active Substance: SIMEPREVIR
     Indication: CHRONIC HEPATITIS C
     Route: 048

REACTIONS (10)
  - Psychiatric symptom [Unknown]
  - Remission not achieved [Unknown]
  - Treatment failure [Unknown]
  - Liver injury [Unknown]
  - Rash [Unknown]
  - Retinopathy [Unknown]
  - Depression [Unknown]
  - Adverse drug reaction [Unknown]
  - Fatigue [Unknown]
  - Blood bilirubin increased [Unknown]
